FAERS Safety Report 8739340 (Version 2)
Quarter: 2013Q4

REPORT INFORMATION
  Report Type: Spontaneous
  Country: US (occurrence: US)
  Receive Date: 20120823
  Receipt Date: 20131101
  Transmission Date: 20140711
  Serious: No
  Sender: FDA-Public Use
  Company Number: US-009507513-1208USA007023

PATIENT
  Sex: Male

DRUGS (1)
  1. SAPHRIS [Suspect]
     Dosage: 5 MG, QD
     Route: 060
     Dates: start: 20120723

REACTIONS (2)
  - Swelling face [Recovering/Resolving]
  - Dyspnoea [Recovering/Resolving]
